FAERS Safety Report 10216594 (Version 2)
Quarter: 2014Q3

REPORT INFORMATION
  Report Type: Spontaneous
  Country: US (occurrence: US)
  Receive Date: 20140604
  Receipt Date: 20140926
  Transmission Date: 20150326
  Serious: Yes (Hospitalization, Other)
  Sender: FDA-Public Use
  Company Number: US-BAYER-2014-082171

PATIENT
  Age: 25 Year
  Sex: Female
  Weight: 68.27 kg

DRUGS (4)
  1. FLUOXETINE [Concomitant]
     Active Substance: FLUOXETINE\FLUOXETINE HYDROCHLORIDE
  2. MIRENA [Suspect]
     Active Substance: LEVONORGESTREL
     Indication: CONTRACEPTION
     Dosage: 20 MCG/24HR, CONT
     Route: 015
     Dates: start: 20111220, end: 20130201
  3. TRIAMCINOLONE ACETONIDE. [Suspect]
     Active Substance: TRIAMCINOLONE ACETONIDE
  4. FISH OIL [Concomitant]
     Active Substance: FISH OIL

REACTIONS (12)
  - Genital haemorrhage [None]
  - Depression [None]
  - Device dislocation [None]
  - Menstruation irregular [None]
  - Uterine perforation [None]
  - Device difficult to use [None]
  - Injury [None]
  - Anxiety [None]
  - Menorrhagia [Recovered/Resolved]
  - Menstrual disorder [None]
  - Pain [None]
  - Emotional distress [None]

NARRATIVE: CASE EVENT DATE: 201112
